FAERS Safety Report 9879950 (Version 1)
Quarter: 2014Q1

REPORT INFORMATION
  Report Type: Report from Study
  Country: US (occurrence: US)
  Receive Date: 20140207
  Receipt Date: 20140207
  Transmission Date: 20141002
  Serious: Yes (Hospitalization)
  Sender: FDA-Public Use
  Company Number: US-PFIZER INC-2014032352

PATIENT
  Age: 38 Year
  Sex: Male
  Weight: 78.4 kg

DRUGS (6)
  1. BLINDED CELECOXIB [Suspect]
     Indication: COLON CANCER
     Dosage: QD STARTING ON DAY 1 OF CYCLE 2 OF FOLFOX, CONTINUED TO 3 YEARS
     Route: 048
     Dates: start: 201201, end: 20131104
  2. BLINDED PLACEBO [Suspect]
     Indication: COLON CANCER
     Dosage: QD STARTING ON DAY 1 OF CYCLE 2 OF FOLFOX, CONTINUED TO 3 YEARS
     Route: 048
     Dates: start: 201201, end: 20131104
  3. FLUOROURACIL [Suspect]
     Indication: COLON CANCER
     Dosage: 400 MG/M2, IVP ON DAY 1
     Route: 040
     Dates: start: 20120105
  4. FLUOROURACIL [Suspect]
     Dosage: 2400 MG/M2 OVER 46-48 HRS ON DAY 1
     Route: 042
     Dates: start: 20120105
  5. OXALIPLATIN [Suspect]
     Indication: COLON CANCER
     Dosage: 85 MG/M2, OVER 2 HRS ON DAY 1
     Route: 042
     Dates: start: 20120105
  6. LEUCOVORIN [Suspect]
     Indication: COLON CANCER
     Dosage: 400 MG/M2, OVER 2 HRS ON DAY 1
     Route: 042
     Dates: start: 20120105

REACTIONS (1)
  - Sepsis [Recovered/Resolved]
